FAERS Safety Report 8583377-5 (Version None)
Quarter: 2012Q3

REPORT INFORMATION
  Report Type: 
  Country: None (occurrence: None)
  Receive Date: 20120809
  Receipt Date: 20120726
  Transmission Date: 20120928
  Serious: Yes (Other)
  Sender: FDA-Public Use
  Company Number: SA-WATSON-2012-13490

PATIENT
  Age: 25 Year
  Sex: Female

DRUGS (1)
  1. LEVETIRACETAM [Suspect]
     Indication: JUVENILE MYOCLONIC EPILEPSY
     Dosage: 500 MG, BID
     Route: 065

REACTIONS (2)
  - CONDITION AGGRAVATED [None]
  - MYOCLONUS [None]
